FAERS Safety Report 15610370 (Version 1)
Quarter: 2018Q4

REPORT INFORMATION
  Report Type: Spontaneous
  Country: US (occurrence: US)
  Receive Date: 20181113
  Receipt Date: 20181113
  Transmission Date: 20190205
  Serious: No
  Sender: FDA-Public Use
  Company Number: US-ROCHE-2084314

PATIENT
  Age: 7 Year
  Sex: Male
  Weight: 33.14 kg

DRUGS (1)
  1. TAMIFLU [Suspect]
     Active Substance: OSELTAMIVIR PHOSPHATE
     Indication: INFLUENZA
     Dosage: LIQUID
     Route: 048
     Dates: start: 20180227, end: 20180227

REACTIONS (5)
  - Urticaria [Recovering/Resolving]
  - Rhinorrhoea [Recovering/Resolving]
  - Oral pain [Not Recovered/Not Resolved]
  - Skin exfoliation [Recovering/Resolving]
  - Lip dry [Recovering/Resolving]

NARRATIVE: CASE EVENT DATE: 20180227
